FAERS Safety Report 9027479 (Version 1)
Quarter: 2013Q1

REPORT INFORMATION
  Report Type: Spontaneous
  Country: US (occurrence: US)
  Receive Date: 20130124
  Receipt Date: 20130124
  Transmission Date: 20140127
  Serious: Yes (Death)
  Sender: FDA-Public Use
  Company Number: US-BIOGENIDEC-2013BI007297

PATIENT
  Sex: Male

DRUGS (2)
  1. AVONEX [Suspect]
     Indication: RELAPSING-REMITTING MULTIPLE SCLEROSIS
     Route: 030
  2. GLATIRAMER [Concomitant]
     Indication: MULTIPLE SCLEROSIS

REACTIONS (3)
  - Central nervous system lymphoma [Fatal]
  - Delusion [Unknown]
  - Confusional state [Unknown]
